FAERS Safety Report 25922563 (Version 1)
Quarter: 2025Q4

REPORT INFORMATION
  Report Type: Spontaneous
  Country: NZ (occurrence: NZ)
  Receive Date: 20251015
  Receipt Date: 20251015
  Transmission Date: 20260117
  Serious: Yes (Hospitalization, Other)
  Sender: GRIFOLS
  Company Number: NZ-IGSA-BIG0038587

PATIENT
  Age: 33 Year
  Sex: Female

DRUGS (7)
  1. RUXOLITINIB [Concomitant]
     Active Substance: RUXOLITINIB
  2. PREDNISONE [Concomitant]
     Active Substance: PREDNISONE
  3. HUMAN IMMUNOGLOBULIN G [Suspect]
     Active Substance: HUMAN IMMUNOGLOBULIN G
     Indication: Transplant rejection
     Route: 042
  4. HUMAN IMMUNOGLOBULIN G [Suspect]
     Active Substance: HUMAN IMMUNOGLOBULIN G
     Indication: Intentional product use issue
  5. THYMOGLOBULINE [Suspect]
     Active Substance: LAPINE T-LYMPHOCYTE IMMUNE GLOBULIN
     Indication: Transplant rejection
  6. METHYLPREDNISOLONE [Suspect]
     Active Substance: METHYLPREDNISOLONE
     Indication: Graft versus host disease
     Dosage: 2 MILLIGRAM/KILOGRAM
     Route: 042
  7. BASILIXIMAB [Suspect]
     Active Substance: BASILIXIMAB
     Indication: Graft versus host disease

REACTIONS (4)
  - Abortion spontaneous [Unknown]
  - Maternal exposure during pregnancy [Unknown]
  - Off label use [Unknown]
  - Drug ineffective [Unknown]
